FAERS Safety Report 18928570 (Version 4)
Quarter: 2021Q2

REPORT INFORMATION
  Report Type: Spontaneous
  Country: FR (occurrence: FR)
  Receive Date: 20210223
  Receipt Date: 20210616
  Transmission Date: 20210717
  Serious: Yes (Disabling, Other)
  Sender: FDA-Public Use
  Company Number: FR-BAYER-2019-136284

PATIENT
  Age: 34 Year
  Sex: Female

DRUGS (3)
  1. ZOELY [Concomitant]
     Active Substance: ESTRADIOL\NOMEGESTROL ACETATE
     Dosage: UNK
     Dates: start: 2012
  2. JASMINELLE [Suspect]
     Active Substance: DROSPIRENONE
     Indication: CONTRACEPTION
     Dosage: UNK
     Route: 048
     Dates: start: 2009, end: 201111
  3. JASMINELLE [Suspect]
     Active Substance: DROSPIRENONE
     Indication: CONTRACEPTION
     Dosage: UNK
     Dates: start: 20120706, end: 2012

REACTIONS (49)
  - Arthralgia [None]
  - Irritable bowel syndrome [None]
  - Nausea [None]
  - Dry skin [None]
  - Muscle spasms [None]
  - Back pain [None]
  - Vestibular neuronitis [None]
  - Ear infection [None]
  - Vaginal haemorrhage [None]
  - Diabetes mellitus [None]
  - Breast pain [None]
  - Pelvic pain [None]
  - Alopecia [None]
  - Asthenia [None]
  - Ear pain [None]
  - Adverse event [None]
  - Abdominal pain [None]
  - Constipation [None]
  - Eczema [None]
  - Joint contracture [None]
  - Swelling [None]
  - Localised infection [Recovered/Resolved]
  - Limb injury [None]
  - Emotional distress [None]
  - Hyperaesthesia [None]
  - Pain in extremity [None]
  - Thirst [None]
  - Neck pain [None]
  - Infected skin ulcer [None]
  - Fibromyalgia [None]
  - Headache [None]
  - Fluid retention [None]
  - Vulvovaginal dryness [None]
  - Libido decreased [None]
  - Lordosis [None]
  - Dizziness [None]
  - Breast cyst [None]
  - Tendonitis [None]
  - Hemianaesthesia [None]
  - Hyperhidrosis [None]
  - Haemorrhoids [None]
  - Urinary tract infection [None]
  - Intermenstrual bleeding [None]
  - Depressed mood [None]
  - Diarrhoea [None]
  - Urinary incontinence [None]
  - Weight increased [None]
  - Hypertension [None]
  - Intermenstrual bleeding [Recovered/Resolved]

NARRATIVE: CASE EVENT DATE: 20110609
